FAERS Safety Report 7711939-3 (Version None)
Quarter: 2011Q3

REPORT INFORMATION
  Report Type: 
  Country: None (occurrence: None)
  Receive Date: 20110826
  Receipt Date: 20110815
  Transmission Date: 20111222
  Serious: No
  Sender: FDA-Public Use
  Company Number: US-B.I. PHARMACEUTICALS,INC./RIDGEFIELD-2011-BP-19975BP

PATIENT
  Sex: Male

DRUGS (11)
  1. METFORMIN HCL [Concomitant]
     Indication: TYPE 2 DIABETES MELLITUS
     Dosage: 2400 MG
     Route: 048
     Dates: start: 20110729
  2. LOVAZA [Concomitant]
     Indication: SUPPLEMENTATION THERAPY
     Dosage: 2400 MG
     Route: 048
     Dates: start: 19990101
  3. METOPROLOL TARTRATE [Concomitant]
     Indication: HYPERTENSION
     Dosage: 100 MG
     Route: 048
     Dates: start: 20101101
  4. MULTI-VITAMIN [Concomitant]
     Indication: SUPPLEMENTATION THERAPY
     Route: 048
     Dates: start: 19710101
  5. TRADJENTA [Suspect]
     Indication: TYPE 2 DIABETES MELLITUS
     Dosage: 5 MG
     Route: 048
     Dates: start: 20110729
  6. PREVACID [Concomitant]
     Indication: GASTROOESOPHAGEAL REFLUX DISEASE
     Dosage: 40 MG
     Route: 048
     Dates: start: 20110729
  7. NOVOLOG FLEX [Concomitant]
     Indication: TYPE 2 DIABETES MELLITUS
     Dosage: 30 RT
     Route: 058
     Dates: start: 20030101
  8. LANTUS [Concomitant]
     Indication: TYPE 2 DIABETES MELLITUS
     Dosage: 152 RT
     Route: 058
     Dates: start: 20030101
  9. LISINOPRIL [Concomitant]
     Indication: HYPERTENSION
     Dosage: 40 MG
     Route: 048
     Dates: start: 20090101
  10. SIMAVASTATIN [Concomitant]
     Indication: HYPERLIPIDAEMIA
     Dosage: 40 MG
     Route: 048
     Dates: start: 20101101
  11. HYDROCHLOROTHIZIDE [Concomitant]
     Indication: HYPERTENSION
     Dosage: 25 MG
     Route: 048
     Dates: start: 20110729

REACTIONS (1)
  - HYPERGLYCAEMIA [None]
